FAERS Safety Report 8740208 (Version 2)
Quarter: 2012Q4

REPORT INFORMATION
  Report Type: 
  Country: US (occurrence: US)
  Receive Date: 20120823
  Receipt Date: 20120904
  Transmission Date: 20130627
  Serious: Yes (Other)
  Sender: FDA-Public Use
  Company Number: US-PFIZER INC-2012204371

PATIENT
  Sex: Female

DRUGS (1)
  1. DILANTIN-125 [Suspect]
     Dosage: UNK

REACTIONS (2)
  - Nervous system disorder [Unknown]
  - Sensory loss [Unknown]
